FAERS Safety Report 7898581-9 (Version None)
Quarter: 2011Q4

REPORT INFORMATION
  Report Type: 
  Country: None (occurrence: None)
  Receive Date: 20111107
  Receipt Date: 20111104
  Transmission Date: 20120403
  Serious: Yes (Life-Threatening, Other)
  Sender: FDA-Public Use
  Company Number: NL-ABBOTT-11P-114-0845070-00

PATIENT
  Sex: Male
  Weight: 87 kg

DRUGS (6)
  1. CYPROTERON [Concomitant]
     Indication: PROSTATE CANCER
     Route: 048
  2. TAMSULOSINE SR [Concomitant]
     Indication: URINARY RETENTION
     Route: 048
  3. LEUPROLIDE ACETATE [Suspect]
     Indication: PROSTATE CANCER
     Route: 058
     Dates: start: 20080515
  4. BICALUTAMIDE [Concomitant]
     Indication: PROSTATE CANCER
     Route: 048
  5. HYDROCHLOROTHIAZIDE [Concomitant]
     Indication: HYPERTENSION
     Route: 048
  6. NADROPARINE 19000 IE/ML [Concomitant]
     Indication: THROMBOSIS
     Dosage: 15200 IE
     Route: 058
     Dates: start: 20110720

REACTIONS (6)
  - THROMBOSIS [None]
  - INTESTINAL POLYP [None]
  - GASTROINTESTINAL CARCINOMA [None]
  - PROSTATIC SPECIFIC ANTIGEN INCREASED [None]
  - LOCAL SWELLING [None]
  - HYPERTENSION [None]
